FAERS Safety Report 4672499-7 (Version None)
Quarter: 2005Q2

REPORT INFORMATION
  Report Type: 
  Country: None (occurrence: None)
  Receive Date: 20050524
  Receipt Date: 20050512
  Transmission Date: 20051028
  Serious: Yes (Hospitalization)
  Sender: FDA-Public Use
  Company Number: 200511387JP

PATIENT
  Sex: Male

DRUGS (1)
  1. LASIX [Suspect]
     Indication: RENAL FAILURE CHRONIC
     Dosage: DOSE: 10 TABLETS A DAY
     Route: 048

REACTIONS (1)
  - PEMPHIGOID [None]
